FAERS Safety Report 4949161-6 (Version None)
Quarter: 2006Q1

REPORT INFORMATION
  Report Type: 
  Country: None (occurrence: None)
  Receive Date: 20060321
  Receipt Date: 20060314
  Transmission Date: 20060701
  Serious: Yes (Hospitalization)
  Sender: FDA-Public Use
  Company Number: KE-BRISTOL-MYERS SQUIBB COMPANY-13316898

PATIENT
  Age: 47 Year
  Sex: Male

DRUGS (1)
  1. TEQUIN [Suspect]
     Indication: BRONCHITIS
     Route: 048

REACTIONS (1)
  - HYPOGLYCAEMIA [None]
